FAERS Safety Report 15795846 (Version 2)
Quarter: 2019Q2

REPORT INFORMATION
  Report Type: Spontaneous
  Country: US (occurrence: US)
  Receive Date: 20190107
  Receipt Date: 20190607
  Transmission Date: 20190711
  Serious: No
  Sender: FDA-Public Use
  Company Number: US-UNITED THERAPEUTICS-UNT-2018-021823

PATIENT
  Age: 52 Year
  Sex: Female
  Weight: 62.13 kg

DRUGS (2)
  1. REMODULIN [Suspect]
     Active Substance: TREPROSTINIL
     Dosage: 0.0385 ?G/KG, CONTINUING
     Route: 058
  2. REMODULIN [Suspect]
     Active Substance: TREPROSTINIL
     Indication: PULMONARY ARTERIAL HYPERTENSION
     Dosage: 0.0355 ?G/KG, CONTINUING
     Route: 058
     Dates: start: 20170811

REACTIONS (2)
  - Device breakage [Unknown]
  - Infusion site injury [Unknown]

NARRATIVE: CASE EVENT DATE: 20181231
